FAERS Safety Report 20088555 (Version 2)
Quarter: 2021Q4

REPORT INFORMATION
  Report Type: Spontaneous
  Country: US (occurrence: US)
  Receive Date: 20211119
  Receipt Date: 20211122
  Transmission Date: 20220303
  Serious: No
  Sender: FDA-Public Use
  Company Number: US-BEH-2021138515

PATIENT
  Sex: Female

DRUGS (2)
  1. HIZENTRA [Suspect]
     Active Substance: HUMAN IMMUNOGLOBULIN G
     Indication: Hyper IgM syndrome
     Dosage: UNK
     Route: 065
  2. HIZENTRA [Suspect]
     Active Substance: HUMAN IMMUNOGLOBULIN G
     Dosage: 11 GRAM, QW
     Route: 058
     Dates: start: 20180420

REACTIONS (7)
  - Injection site pruritus [Recovered/Resolved]
  - Recalled product administered [Recovered/Resolved]
  - Injection site swelling [Recovered/Resolved]
  - Recalled product administered [Recovered/Resolved]
  - Infusion site rash [Recovered/Resolved]
  - Recalled product administered [Recovered/Resolved]
  - Infusion site swelling [Unknown]
